FAERS Safety Report 4918201-2 (Version None)
Quarter: 2006Q1

REPORT INFORMATION
  Report Type: 
  Country: None (occurrence: None)
  Receive Date: 20060215
  Receipt Date: 20050202
  Transmission Date: 20060701
  Serious: Yes (Other)
  Sender: FDA-Public Use
  Company Number: 13427

PATIENT
  Age: 19 Day
  Sex: Male

DRUGS (5)
  1. AMIODARONE [Suspect]
     Indication: SUPRAVENTRICULAR TACHYCARDIA
  2. AMIODARONE [Suspect]
     Indication: SUPRAVENTRICULAR TACHYCARDIA
  3. DOBUTAMINE HCL [Concomitant]
  4. DOPAMINE [Concomitant]
  5. GLUCOSE [Concomitant]

REACTIONS (1)
  - HYPERGLYCAEMIA [None]
